FAERS Safety Report 19844677 (Version 2)
Quarter: 2021Q4

REPORT INFORMATION
  Report Type: Spontaneous
  Country: MX (occurrence: MX)
  Receive Date: 20210917
  Receipt Date: 20211208
  Transmission Date: 20220303
  Serious: Yes (Death, Other)
  Sender: FDA-Public Use
  Company Number: MX-NOVOPROD-846405

PATIENT
  Sex: Male

DRUGS (2)
  1. NOVOEIGHT [Suspect]
     Active Substance: ANTIHEMOPHILIC FACTOR, HUMAN RECOMBINANT
     Indication: Product used for unknown indication
     Dosage: UNK (ARBITRARY UNITS)
     Route: 065
  2. NOVOEIGHT [Suspect]
     Active Substance: ANTIHEMOPHILIC FACTOR, HUMAN RECOMBINANT
     Dosage: UNK (DOSE INCREASED)
     Route: 065

REACTIONS (7)
  - Death [Fatal]
  - Gangrene [Not Recovered/Not Resolved]
  - Illness [Unknown]
  - Anal haemorrhage [Unknown]
  - Haemorrhage [Unknown]
  - Appetite disorder [Unknown]
  - Burning sensation [Unknown]

NARRATIVE: CASE EVENT DATE: 20211113
